FAERS Safety Report 7627495-4 (Version None)
Quarter: 2011Q3

REPORT INFORMATION
  Report Type: 
  Country: None (occurrence: None)
  Receive Date: 20110721
  Receipt Date: 20110713
  Transmission Date: 20111222
  Serious: Yes (Death)
  Sender: FDA-Public Use
  Company Number: GB-GENZYME-CLOF-1001609

PATIENT
  Sex: Male

DRUGS (2)
  1. EVOLTRA [Suspect]
     Indication: ACUTE MYELOID LEUKAEMIA
     Dosage: 20 MG/M2, QDX5
     Route: 065
     Dates: start: 20110105, end: 20110109
  2. DAUNORUBICIN HCL [Suspect]
     Indication: ACUTE MYELOID LEUKAEMIA
     Dosage: 50 MG/M2, QDX5
     Route: 065
     Dates: start: 20110105, end: 20110109

REACTIONS (1)
  - FUNGAL INFECTION [None]
